FAERS Safety Report 12580798 (Version 1)
Quarter: 2016Q3

REPORT INFORMATION
  Report Type: Spontaneous
  Country: US (occurrence: US)
  Receive Date: 20160721
  Receipt Date: 20160721
  Transmission Date: 20161109
  Serious: Yes (Other)
  Sender: FDA-Public Use
  Company Number: US-PFIZER INC-2016354299

PATIENT
  Age: 59 Year
  Sex: Female

DRUGS (1)
  1. LYRICA [Suspect]
     Active Substance: PREGABALIN
     Indication: FIBROMYALGIA
     Dosage: UNK

REACTIONS (7)
  - Fatigue [Unknown]
  - Malaise [Unknown]
  - Dry skin [Unknown]
  - Insomnia [Unknown]
  - Pruritus [Unknown]
  - Weight increased [Unknown]
  - Eating disorder [Unknown]
